FAERS Safety Report 12487490 (Version 2)
Quarter: 2020Q2

REPORT INFORMATION
  Report Type: Spontaneous
  Country: US (occurrence: US)
  Receive Date: 20160622
  Receipt Date: 20200423
  Transmission Date: 20200713
  Serious: Yes (Hospitalization)
  Sender: FDA-Public Use
  Company Number: US-BAUSCH-BL-2016-014716

PATIENT
  Age: 84 Year
  Sex: Male
  Weight: 60 kg

DRUGS (15)
  1. VORICONAZOLE. [Interacting]
     Active Substance: VORICONAZOLE
     Indication: PHAEOHYPHOMYCOSIS
     Dosage: 6 MG/KG X 2 DOSES
     Route: 042
  2. VORICONAZOLE. [Interacting]
     Active Substance: VORICONAZOLE
     Dosage: ON DAY 52
     Route: 048
  3. DEXAMETHASONE. [Interacting]
     Active Substance: DEXAMETHASONE
     Route: 048
  4. VORICONAZOLE. [Interacting]
     Active Substance: VORICONAZOLE
     Route: 042
  5. VORICONAZOLE. [Interacting]
     Active Substance: VORICONAZOLE
     Route: 048
  6. DEXAMETHASONE. [Suspect]
     Active Substance: DEXAMETHASONE
     Indication: BRAIN OEDEMA
     Dosage: FROM THE START OF VORICONAZOLE THERAPY UNTIL DAY 37 WHEN THE DECISION WAS MADE TO START TAPERING
     Route: 048
  7. DEXAMETHASONE. [Interacting]
     Active Substance: DEXAMETHASONE
     Route: 048
  8. DEXAMETHASONE. [Interacting]
     Active Substance: DEXAMETHASONE
     Route: 048
  9. DEXAMETHASONE. [Interacting]
     Active Substance: DEXAMETHASONE
     Route: 048
  10. VANCOMYCIN [Concomitant]
     Active Substance: VANCOMYCIN
     Indication: INFECTION PROPHYLAXIS
  11. VORICONAZOLE. [Interacting]
     Active Substance: VORICONAZOLE
     Dosage: SWITCHED FROM INTRAVENOUS TO ORAL ON DAY 4 OF THERAPY
     Route: 048
  12. CEFEPIME [Concomitant]
     Active Substance: CEFEPIME HYDROCHLORIDE
     Indication: INFECTION PROPHYLAXIS
  13. VORICONAZOLE. [Interacting]
     Active Substance: VORICONAZOLE
     Indication: CEREBRAL FUNGAL INFECTION
     Dosage: 4 MG/KG
     Route: 042
  14. VORICONAZOLE. [Interacting]
     Active Substance: VORICONAZOLE
     Dosage: ON DAY 44
     Route: 042
  15. METRONIDAZOLE. [Concomitant]
     Active Substance: METRONIDAZOLE
     Indication: INFECTION PROPHYLAXIS

REACTIONS (4)
  - Drug interaction [Recovering/Resolving]
  - Phaeohyphomycosis [Recovering/Resolving]
  - Cerebral fungal infection [Recovering/Resolving]
  - Disease progression [Recovering/Resolving]
